FAERS Safety Report 25907999 (Version 1)
Quarter: 2025Q4

REPORT INFORMATION
  Report Type: Report from Study
  Country: US (occurrence: US)
  Receive Date: 20251010
  Receipt Date: 20251010
  Transmission Date: 20260117
  Serious: No
  Sender: MALLINCKRODT
  Company Number: US-MALLINCKRODT-MNK202505909

PATIENT
  Sex: Female
  Weight: 7 kg

DRUGS (5)
  1. CORTICOTROPIN [Suspect]
     Active Substance: CORTICOTROPIN
     Indication: Infantile spasms
     Dosage: 3.2 UNITS
     Route: 030
     Dates: start: 20250814, end: 2025
  2. CEFTRIAXONE SODIUM\TAZOBACTAM SODIUM [Concomitant]
     Active Substance: CEFTRIAXONE SODIUM\TAZOBACTAM SODIUM
     Dosage: UNKNOWN
  3. KEPPRA [Concomitant]
     Active Substance: LEVETIRACETAM
     Dosage: UNKNOWN
  4. PEPCID [Concomitant]
     Active Substance: FAMOTIDINE
     Dosage: UNKNOWN
  5. TYLENOL [Concomitant]
     Active Substance: ACETAMINOPHEN
     Dosage: UNKNOWN

REACTIONS (1)
  - Absence of immediate treatment response [Not Recovered/Not Resolved]
